FAERS Safety Report 7768776-3 (Version None)
Quarter: 2011Q3

REPORT INFORMATION
  Report Type: 
  Country: None (occurrence: None)
  Receive Date: 20110922
  Receipt Date: 20110214
  Transmission Date: 20111222
  Serious: No
  Sender: FDA-Public Use
  Company Number: US-ASTRAZENECA-2011SE08470

PATIENT
  Age: 17 Year
  Sex: Male

DRUGS (6)
  1. SEROQUEL [Suspect]
     Indication: ATTENTION DEFICIT/HYPERACTIVITY DISORDER
     Route: 048
     Dates: start: 20070709, end: 20070709
  2. SEROQUEL [Suspect]
     Route: 048
     Dates: start: 20070709, end: 20070809
  3. SEROQUEL [Suspect]
     Route: 048
     Dates: start: 20070909
  4. SEROQUEL [Suspect]
     Indication: NERVOUS SYSTEM DISORDER
     Route: 048
     Dates: start: 20070709, end: 20070709
  5. SEROQUEL [Suspect]
     Route: 048
     Dates: start: 20070709, end: 20070809
  6. SEROQUEL [Suspect]
     Route: 048
     Dates: start: 20070909

REACTIONS (2)
  - NEGATIVE THOUGHTS [None]
  - AGGRESSION [None]
